FAERS Safety Report 8806879 (Version 2)
Quarter: 2012Q4

REPORT INFORMATION
  Report Type: 
  Country: JP (occurrence: JP)
  Receive Date: 20120925
  Receipt Date: 20121003
  Transmission Date: 20130627
  Serious: No
  Sender: FDA-Public Use
  Company Number: JP-AMGEN-JPNSP2012060245

PATIENT
  Sex: Female

DRUGS (4)
  1. RANMARK [Suspect]
     Indication: PRODUCT USED FOR UNKNOWN INDICATION
     Dosage: Unknown
     Route: 058
     Dates: start: 20120605, end: 20120703
  2. CALCIUM LACTATE [Concomitant]
     Dosage: UNK UNK, UNK
     Route: 042
     Dates: start: 20120703
  3. ALFAROL [Concomitant]
     Dosage: UNK UNK, UNK
     Route: 042
     Dates: start: 20120703
  4. ZOMETA [Concomitant]
     Dosage: UNK

REACTIONS (2)
  - Hypocalcaemia [Recovered/Resolved]
  - Pain in jaw [Unknown]
